FAERS Safety Report 5039630-5 (Version None)
Quarter: 2006Q2

REPORT INFORMATION
  Report Type: 
  Country: None (occurrence: None)
  Receive Date: 20060601
  Receipt Date: 20060120
  Transmission Date: 20061013
  Serious: No
  Sender: FDA-Public Use
  Company Number: 2006PV007397

PATIENT
  Age: 68 Year
  Sex: Male
  Weight: 88.905 kg

DRUGS (3)
  1. BYETTA [Suspect]
     Indication: DIABETES MELLITUS NON-INSULIN-DEPENDENT
     Dosage: 5 MCG; BID; SC
     Route: 058
     Dates: start: 20051223
  2. GLIPIZIDE [Concomitant]
  3. AMOXICINILLIN/CLAVULLANATE POTASSIUM [Concomitant]

REACTIONS (6)
  - ASTHENIA [None]
  - HYPOGLYCAEMIA [None]
  - PAIN [None]
  - TOOTH ABSCESS [None]
  - TREMOR [None]
  - WOUND INFECTION [None]
